FAERS Safety Report 4539368-4 (Version None)
Quarter: 2004Q4

REPORT INFORMATION
  Report Type: 
  Country: None (occurrence: None)
  Receive Date: 20041222
  Receipt Date: 20041210
  Transmission Date: 20050328
  Serious: Yes (Hospitalization, Other)
  Sender: FDA-Public Use
  Company Number: 2004112620

PATIENT
  Sex: Female

DRUGS (1)
  1. LATANOPROST [Suspect]
     Indication: GLAUCOMA
     Dosage: 1 DROP (DAILY INTERVAL:  EVERY DAY), OPHTHALMIC
     Route: 047
     Dates: start: 20030601

REACTIONS (1)
  - GASTRIC CANCER [None]
